FAERS Safety Report 20726435 (Version 1)
Quarter: 2022Q2

REPORT INFORMATION
  Report Type: Report from Study
  Country: US (occurrence: US)
  Receive Date: 20220419
  Receipt Date: 20220419
  Transmission Date: 20220721
  Serious: Yes (Other)
  Sender: FDA-Public Use
  Company Number: US-JAZZ-2021-US-022945

PATIENT
  Sex: Female

DRUGS (5)
  1. XYREM [Suspect]
     Active Substance: SODIUM OXYBATE
     Indication: Narcolepsy
     Dosage: 2.25 GRAM, BID
     Route: 048
     Dates: start: 201809, end: 201809
  2. XYREM [Suspect]
     Active Substance: SODIUM OXYBATE
     Indication: Ehlers-Danlos syndrome
     Dosage: DOSE ADJUSTMENT
     Route: 048
     Dates: start: 201809, end: 202002
  3. XYREM [Suspect]
     Active Substance: SODIUM OXYBATE
     Indication: Cataplexy
     Dosage: 4 GRAM, BID
     Route: 048
     Dates: start: 202002
  4. BUSPAR [Suspect]
     Active Substance: BUSPIRONE HYDROCHLORIDE
     Indication: Product used for unknown indication
  5. CANNABIS SATIVA SUBSP. INDICA TOP [Concomitant]
     Active Substance: CANNABIS SATIVA SUBSP. INDICA TOP
     Indication: Product used for unknown indication
     Dosage: 0000
     Dates: start: 20190620

REACTIONS (3)
  - Suicidal ideation [Recovered/Resolved]
  - Therapeutic procedure [Unknown]
  - Obesity [Recovering/Resolving]
